FAERS Safety Report 5849586-0 (Version None)
Quarter: 2008Q3

REPORT INFORMATION
  Report Type: 
  Country: None (occurrence: None)
  Receive Date: 20080819
  Receipt Date: 20080808
  Transmission Date: 20090109
  Serious: Yes (Other)
  Sender: FDA-Public Use
  Company Number: US-JNJFOC-20080800550

PATIENT
  Sex: Female
  Weight: 114.76 kg

DRUGS (10)
  1. REMICADE [Suspect]
     Dosage: 13TH DOSE
     Route: 042
  2. REMICADE [Suspect]
     Indication: ANKYLOSING SPONDYLITIS
     Dosage: DOSES 1 TO 12.
     Route: 042
  3. DARVOCET [Concomitant]
  4. LOPRESSOR [Concomitant]
  5. LIPITOR [Concomitant]
  6. MAXZIDE [Concomitant]
  7. HYTRIN [Concomitant]
  8. TAGAMET [Concomitant]
  9. PIROCAM [Concomitant]
  10. METHOTREXATE [Concomitant]

REACTIONS (1)
  - NON-HODGKIN'S LYMPHOMA [None]
